FAERS Safety Report 10870370 (Version 12)
Quarter: 2015Q4

REPORT INFORMATION
  Report Type: Report from Study
  Country: US (occurrence: None)
  Receive Date: 20150223
  Receipt Date: 20151211
  Transmission Date: 20160304
  Serious: Yes (Hospitalization, Other)
  Sender: FDA-Public Use
  Company Number: ADR-2015-00261

PATIENT
  Age: 53 Year
  Sex: Female

DRUGS (2)
  1. LIORESAL [Suspect]
     Active Substance: BACLOFEN
     Dosage: 152.93 MCG/DAY
  2. LIORESAL [Suspect]
     Active Substance: BACLOFEN
     Indication: MUSCLE SPASTICITY
     Dosage: 104.54 MCG/DAY

REACTIONS (26)
  - Cerumen impaction [None]
  - Dyspepsia [None]
  - Performance status decreased [None]
  - Balance disorder [None]
  - Fall [None]
  - Muscle spasticity [None]
  - Adverse drug reaction [None]
  - Dermatitis [None]
  - Hypertension [None]
  - Pain in extremity [None]
  - Pain [None]
  - X-ray abnormal [None]
  - Diabetic ketoacidosis [None]
  - Joint effusion [None]
  - Skin discolouration [None]
  - Ischaemic stroke [None]
  - Muscle spasms [None]
  - Contusion [None]
  - Nausea [None]
  - Arthralgia [None]
  - Ligament sprain [None]
  - Type 2 diabetes mellitus [None]
  - Benign neoplasm of skin [None]
  - Unevaluable event [None]
  - Oedema peripheral [None]
  - Blood glucose increased [None]
